FAERS Safety Report 5704424-1 (Version None)
Quarter: 2008Q2

REPORT INFORMATION
  Report Type: 
  Country: None (occurrence: None)
  Receive Date: 20080414
  Receipt Date: 20080402
  Transmission Date: 20081010
  Serious: Yes (Hospitalization)
  Sender: FDA-Public Use
  Company Number: B0515576A

PATIENT
  Age: 68 Year
  Sex: Female

DRUGS (4)
  1. FORTUM [Suspect]
     Indication: OSTEITIS
     Route: 042
     Dates: start: 20061213, end: 20070129
  2. VANCOMYCIN HCL [Suspect]
     Indication: DRUG USE FOR UNKNOWN INDICATION
     Route: 042
     Dates: start: 20061223, end: 20070129
  3. RIFAMPICIN [Suspect]
     Indication: DRUG USE FOR UNKNOWN INDICATION
     Route: 042
  4. TRIFLUCAN [Suspect]
     Indication: DRUG USE FOR UNKNOWN INDICATION
     Route: 042
     Dates: start: 20070123, end: 20070130

REACTIONS (3)
  - BICYTOPENIA [None]
  - NEUTROPENIA [None]
  - THROMBOCYTOPENIA [None]
